FAERS Safety Report 4366332-0 (Version None)
Quarter: 2004Q2

REPORT INFORMATION
  Report Type: 
  Country: None (occurrence: None)
  Receive Date: 20040527
  Receipt Date: 20030908
  Transmission Date: 20050107
  Serious: No
  Sender: FDA-Public Use
  Company Number: US-GLAXOSMITHKLINE-A0425081A

PATIENT
  Age: 47 Year
  Sex: Female

DRUGS (5)
  1. VENTOLIN [Suspect]
     Indication: ASTHMA
     Dosage: 1PUFF AS REQUIRED
     Route: 055
  2. SINGULAIR [Concomitant]
  3. PRILOSEC [Concomitant]
  4. FLOVENT [Concomitant]
  5. SEREVENT [Concomitant]

REACTIONS (1)
  - DRUG INEFFECTIVE [None]
